FAERS Safety Report 9216312 (Version 2)
Quarter: 2013Q2

REPORT INFORMATION
  Report Type: Spontaneous
  Country: FR (occurrence: FR)
  Receive Date: 20130408
  Receipt Date: 20130617
  Transmission Date: 20140414
  Serious: Yes (Other)
  Sender: FDA-Public Use
  Company Number: PHHY2013FR032931

PATIENT
  Sex: Female

DRUGS (4)
  1. LEPONEX [Suspect]
     Dosage: 75 MG, 1DF ONCE
     Dates: start: 20130401, end: 20130401
  2. NORSET [Suspect]
     Dosage: UNK, 1 DF ONCE
     Dates: start: 20130401, end: 20130401
  3. SERESTA [Suspect]
     Dosage: 10 MG, 1 DF ONCE
     Dates: start: 20130401, end: 20130401
  4. SINEMET [Suspect]
     Dosage: UNK, 1DF ONCE
     Dates: start: 20130401, end: 20130401

REACTIONS (2)
  - Wrong drug administered [Unknown]
  - Somnolence [Not Recovered/Not Resolved]
